FAERS Safety Report 14102916 (Version 1)
Quarter: 2017Q4

REPORT INFORMATION
  Report Type: Spontaneous
  Country: US (occurrence: US)
  Receive Date: 20171018
  Receipt Date: 20171018
  Transmission Date: 20180321
  Serious: No
  Sender: FDA-Public Use
  Company Number: US-PERRIGO-17US001380

PATIENT
  Age: 60 Year
  Sex: Female
  Weight: 64.85 kg

DRUGS (5)
  1. METFORMIN [Concomitant]
     Active Substance: METFORMIN HYDROCHLORIDE
     Indication: DIABETES MELLITUS
     Dosage: UNKNOWN, UNKNOWN
     Route: 048
     Dates: start: 2010
  2. ERYTHROMYCIN. [Suspect]
     Active Substance: ERYTHROMYCIN
     Indication: EYE IRRITATION
     Dosage: UNKNOWN, UNKNOWN
     Route: 047
     Dates: start: 2010, end: 2010
  3. STATIN                             /00084401/ [Concomitant]
     Active Substance: THIABENDAZOLE
     Indication: BLOOD CHOLESTEROL INCREASED
     Dosage: 20 MG, UNKNOWN
     Route: 048
     Dates: start: 2010
  4. LISINOPRIL. [Concomitant]
     Active Substance: LISINOPRIL
     Indication: HYPERTENSION
     Dosage: 10 MG, UNKNOWN
     Route: 048
     Dates: start: 2010
  5. ERYTHROMYCIN. [Suspect]
     Active Substance: ERYTHROMYCIN
     Indication: HORDEOLUM
     Dosage: ONE APPLICATION, SINGLE
     Route: 047
     Dates: start: 20170203, end: 20170203

REACTIONS (2)
  - Ocular hyperaemia [Recovered/Resolved]
  - Off label use [Recovered/Resolved]

NARRATIVE: CASE EVENT DATE: 2010
